FAERS Safety Report 22620706 (Version 3)
Quarter: 2023Q2

REPORT INFORMATION
  Report Type: Report from Study
  Country: TW (occurrence: TW)
  Receive Date: 20230620
  Receipt Date: 20230626
  Transmission Date: 20230721
  Serious: Yes (Hospitalization)
  Sender: FDA-Public Use
  Company Number: TW-ABBVIE-5294698

PATIENT
  Age: 59 Year
  Sex: Male
  Weight: 77 kg

DRUGS (4)
  1. SKYRIZI [Suspect]
     Active Substance: RISANKIZUMAB-RZAA
     Indication: Psoriasis
     Route: 058
     Dates: start: 20220425
  2. SKYRIZI [Suspect]
     Active Substance: RISANKIZUMAB-RZAA
     Route: 058
     Dates: start: 20220328, end: 20220328
  3. Zalain Cream 2% 15 g/tube [Concomitant]
     Indication: Product used for unknown indication
  4. Sinpharderm Cream 10% 30 g/tube [Concomitant]
     Indication: Product used for unknown indication

REACTIONS (4)
  - Ureterolithiasis [Recovered/Resolved]
  - Renal cyst [Unknown]
  - Hydronephrosis [Unknown]
  - Nephrolithiasis [Unknown]

NARRATIVE: CASE EVENT DATE: 20230307
